FAERS Safety Report 4313587-4 (Version None)
Quarter: 2004Q1

REPORT INFORMATION
  Report Type: 
  Country: None (occurrence: None)
  Receive Date: 20040304
  Receipt Date: 20040212
  Transmission Date: 20041129
  Serious: Yes (Other)
  Sender: FDA-Public Use
  Company Number: USA030537252

PATIENT
  Age: 66 Year
  Sex: Female
  Weight: 127 kg

DRUGS (18)
  1. FORTEO [Suspect]
     Indication: OSTEOPOROSIS
     Dosage: 20 UG/DAY
     Dates: start: 20030424, end: 20031201
  2. CITRACAL + D [Concomitant]
  3. FOLIC ACID [Concomitant]
  4. DYAZIDE [Concomitant]
  5. VITAMIN E [Concomitant]
  6. CENTRUM [Concomitant]
  7. VITAMIN B COMPLEX CAP [Concomitant]
  8. TOPROL-XL [Concomitant]
  9. OSCAL (CALCIUM CARBONATE) [Concomitant]
  10. MAGNESIUM [Concomitant]
  11. ZANTAC [Concomitant]
  12. FLEXERIL [Concomitant]
  13. LIPITOR [Concomitant]
  14. PREDNISONE [Concomitant]
  15. CALCIUM [Concomitant]
  16. ZOLOFT [Concomitant]
  17. VITAMIN B-12 [Concomitant]
  18. VITAMIN B6 [Concomitant]

REACTIONS (12)
  - ABDOMINAL PAIN UPPER [None]
  - ARTHRALGIA [None]
  - DIZZINESS [None]
  - DRUG INTERACTION [None]
  - GASTROOESOPHAGEAL REFLUX DISEASE [None]
  - HAEMOGLOBIN DECREASED [None]
  - HAEMOLYSIS [None]
  - HEADACHE [None]
  - MUSCLE CRAMP [None]
  - MUSCLE DISORDER [None]
  - MUSCLE TWITCHING [None]
  - RED BLOOD CELL COUNT DECREASED [None]
